FAERS Safety Report 5931789-8 (Version None)
Quarter: 2008Q4

REPORT INFORMATION
  Report Type: 
  Country: None (occurrence: None)
  Receive Date: 20081027
  Receipt Date: 20081015
  Transmission Date: 20090506
  Serious: Yes (Other)
  Sender: FDA-Public Use
  Company Number: US-PFIZER INC-2008087134

PATIENT
  Sex: Male

DRUGS (3)
  1. DIABINESE [Suspect]
     Indication: DIABETES MELLITUS
     Dates: start: 19630101
  2. VICODIN [Suspect]
  3. DRUG, UNSPECIFIED [Suspect]

REACTIONS (7)
  - DEPRESSION [None]
  - HYPERTENSION [None]
  - HYPOPARATHYROIDISM [None]
  - OSTEOPOROSIS [None]
  - PARATHYROID DISORDER [None]
  - SOMNOLENCE [None]
  - WEIGHT DECREASED [None]
